FAERS Safety Report 24791368 (Version 1)
Quarter: 2024Q4

REPORT INFORMATION
  Report Type: Report from Study
  Country: US (occurrence: US)
  Receive Date: 20241231
  Receipt Date: 20241231
  Transmission Date: 20250115
  Serious: No
  Sender: SUNOVION
  Company Number: US-SMPA-2024SPA006033AA

PATIENT

DRUGS (20)
  1. ORGOVYX [Suspect]
     Active Substance: RELUGOLIX
     Indication: Prostate cancer
     Dosage: 360 MG, SINGLE
     Route: 048
     Dates: start: 20241203, end: 20241203
  2. ORGOVYX [Suspect]
     Active Substance: RELUGOLIX
     Dosage: 120 MG, QD
     Route: 048
     Dates: start: 20241204
  3. PROBIOTICS NOS [Concomitant]
     Active Substance: PROBIOTICS NOS
  4. OMEPRAZOLE [Concomitant]
     Active Substance: OMEPRAZOLE
  5. TERAZOSIN [Concomitant]
     Active Substance: TERAZOSIN HYDROCHLORIDE
  6. VITAMIN B12 [Concomitant]
     Active Substance: CYANOCOBALAMIN
  7. NEBIVOLOL [Concomitant]
     Active Substance: NEBIVOLOL
  8. COENZYME Q10 [Concomitant]
     Active Substance: DIETARY SUPPLEMENT\UBIDECARENONE
  9. ATORVASTATIN [Concomitant]
     Active Substance: ATORVASTATIN
  10. PREDNISONE [Concomitant]
     Active Substance: PREDNISONE
  11. EZETIMIBE [Concomitant]
     Active Substance: EZETIMIBE
  12. ASPIRIN [Concomitant]
     Active Substance: ASPIRIN
  13. MINERALS\VITAMINS [Concomitant]
     Active Substance: MINERALS\VITAMINS
  14. FUROSEMIDE [Concomitant]
     Active Substance: FUROSEMIDE
  15. OZEMPIC [Concomitant]
     Active Substance: SEMAGLUTIDE
  16. FIASP [Concomitant]
     Active Substance: INSULIN ASPART
  17. VITAMIN C [Concomitant]
     Active Substance: ASCORBIC ACID
  18. VITAMIN D3 [Concomitant]
     Active Substance: CHOLECALCIFEROL
  19. FARXIGA [Concomitant]
     Active Substance: DAPAGLIFLOZIN PROPANEDIOL
  20. LISINOPRIL [Concomitant]
     Active Substance: LISINOPRIL

REACTIONS (2)
  - Ocular hyperaemia [Unknown]
  - Fatigue [Unknown]

NARRATIVE: CASE EVENT DATE: 20241205
